FAERS Safety Report 15234447 (Version 1)
Quarter: 2018Q3

REPORT INFORMATION
  Report Type: Spontaneous
  Country: CL (occurrence: CL)
  Receive Date: 20180803
  Receipt Date: 20180803
  Transmission Date: 20181010
  Serious: No
  Sender: FDA-Public Use
  Company Number: CL-ALKEM LABORATORIES LIMITED-CL-ALKEM-2018-05283

PATIENT

DRUGS (1)
  1. FINASTERIDE. [Suspect]
     Active Substance: FINASTERIDE
     Indication: ANDROGENETIC ALOPECIA
     Dosage: 1 MG, QD
     Route: 065

REACTIONS (14)
  - Breast enlargement [Unknown]
  - Abdominal pain upper [Unknown]
  - Ejaculation disorder [Unknown]
  - Erectile dysfunction [Unknown]
  - Nasopharyngitis [Unknown]
  - Headache [Unknown]
  - Abdominal pain [Unknown]
  - Influenza [Unknown]
  - Adverse event [Unknown]
  - Upper respiratory tract infection [Unknown]
  - Libido disorder [Unknown]
  - Back pain [Unknown]
  - Pharyngitis [Unknown]
  - Rhinitis allergic [Unknown]
